FAERS Safety Report 9197966 (Version 2)
Quarter: 2013Q4

REPORT INFORMATION
  Report Type: Spontaneous
  Country: GB (occurrence: GB)
  Receive Date: 20130328
  Receipt Date: 20131003
  Transmission Date: 20140711
  Serious: Yes (Death, Other)
  Sender: FDA-Public Use
  Company Number: GB-ROCHE-1206996

PATIENT
  Age: 71 Year
  Sex: Female
  Weight: 56.9 kg

DRUGS (5)
  1. AVASTIN [Suspect]
     Indication: COLON CANCER METASTATIC
     Route: 042
     Dates: start: 20130213, end: 20130213
  2. XELODA [Suspect]
     Indication: COLON CANCER METASTATIC
     Route: 048
     Dates: start: 20130213, end: 20130221
  3. IRINOTECAN [Suspect]
     Indication: COLON CANCER METASTATIC
     Route: 042
     Dates: start: 20130213, end: 20130213
  4. LANSOPRAZOLE [Concomitant]
  5. ORAMORPH [Concomitant]

REACTIONS (2)
  - Pulmonary embolism [Fatal]
  - Myocardial ischaemia [Not Recovered/Not Resolved]
